FAERS Safety Report 5019210-8 (Version None)
Quarter: 2006Q2

REPORT INFORMATION
  Report Type: 
  Country: None (occurrence: None)
  Receive Date: 20060531
  Receipt Date: 20060515
  Transmission Date: 20061013
  Serious: Yes (Hospitalization)
  Sender: FDA-Public Use
  Company Number: APP200600136

PATIENT
  Age: 68 Year
  Sex: Female
  Weight: 59.5119 kg

DRUGS (7)
  1. FLUOROURACIL INJ [Suspect]
     Indication: BILIARY NEOPLASM
     Dosage: (375 MG/M2, DAILY X 5 DAYS), INTRAVENOUS
     Route: 042
     Dates: start: 20060403
  2. LEUKOVORIN (CALCIUM FOLINATE) [Suspect]
     Indication: BILIARY NEOPLASM
     Dosage: (25 MG/M2, QD X 5 DAYS, INTRAVENOUS
     Route: 042
     Dates: start: 20060403
  3. AMBIEN [Concomitant]
  4. COMPAZINE [Concomitant]
  5. ALDACTONE [Concomitant]
  6. DARVOCET-N (PROPACET) [Concomitant]
  7. MACROBID [Concomitant]

REACTIONS (4)
  - CULTURE URINE POSITIVE [None]
  - ENTEROCOCCAL INFECTION [None]
  - FEBRILE NEUTROPENIA [None]
  - PROTEUS INFECTION [None]
